FAERS Safety Report 6236045-9 (Version None)
Quarter: 2009Q2

REPORT INFORMATION
  Report Type: 
  Country: None (occurrence: None)
  Receive Date: 20090619
  Receipt Date: 20090610
  Transmission Date: 20091009
  Serious: Yes (Hospitalization)
  Sender: FDA-Public Use
  Company Number: US-BIOGENIDEC-2009BI016214

PATIENT
  Age: 57 Year
  Sex: Female

DRUGS (3)
  1. AVONEX [Suspect]
     Indication: MULTIPLE SCLEROSIS
     Route: 030
     Dates: start: 20070701
  2. AVONEX [Suspect]
     Route: 030
     Dates: start: 20000201, end: 20031101
  3. AVONEX [Suspect]
     Route: 030
     Dates: start: 20031101

REACTIONS (1)
  - CYSTITIS INTERSTITIAL [None]
